FAERS Safety Report 11681349 (Version 3)
Quarter: 2015Q4

REPORT INFORMATION
  Report Type: Spontaneous
  Country: US (occurrence: US)
  Receive Date: 20151027
  Receipt Date: 20151110
  Transmission Date: 20160304
  Serious: No
  Sender: FDA-Public Use
  Company Number: US-ELI_LILLY_AND_COMPANY-US201008006676

PATIENT
  Age: 74 Year
  Sex: Female

DRUGS (5)
  1. FORTEO [Suspect]
     Active Substance: TERIPARATIDE
     Indication: OSTEOPOROSIS
     Dosage: 20.000000 UG, QD
     Route: 065
  2. FORTEO [Suspect]
     Active Substance: TERIPARATIDE
     Dosage: 20 UG, QD
     Route: 065
  3. FORTEO [Suspect]
     Active Substance: TERIPARATIDE
     Dosage: 20 UG, QD
     Route: 065
  4. FORTEO [Suspect]
     Active Substance: TERIPARATIDE
     Dosage: 20 UG, QD
     Route: 065
     Dates: end: 201112
  5. FORTEO [Suspect]
     Active Substance: TERIPARATIDE
     Dosage: 20 UG, QD
     Route: 065
     Dates: start: 20120212

REACTIONS (16)
  - Somnolence [Recovering/Resolving]
  - Productive cough [Unknown]
  - Fall [Unknown]
  - Pain [Not Recovered/Not Resolved]
  - Laryngitis [Unknown]
  - Contusion [Unknown]
  - Muscle spasms [Unknown]
  - Feeling abnormal [Unknown]
  - Drug dose omission [Unknown]
  - Bursitis [Unknown]
  - Arthralgia [Unknown]
  - Arthralgia [Not Recovered/Not Resolved]
  - Tendonitis [Unknown]
  - Asthenia [Unknown]
  - Myalgia [Unknown]
  - Pain in extremity [Unknown]

NARRATIVE: CASE EVENT DATE: 20120223
